FAERS Safety Report 19971753 (Version 1)
Quarter: 2021Q4

REPORT INFORMATION
  Report Type: Spontaneous
  Country: FR (occurrence: FR)
  Receive Date: 20211019
  Receipt Date: 20211019
  Transmission Date: 20220303
  Serious: Yes (Other)
  Sender: FDA-Public Use
  Company Number: None

PATIENT
  Age: 73 Year
  Sex: Male

DRUGS (2)
  1. HYDREA [Suspect]
     Active Substance: HYDROXYUREA
     Indication: Neoplasm malignant
     Dosage: UNK
     Route: 065
     Dates: start: 20210330
  2. AZACITIDINE [Suspect]
     Active Substance: AZACITIDINE
     Indication: Neoplasm malignant
     Dosage: UNK
     Route: 065

REACTIONS (1)
  - Osteonecrosis of jaw [Not Recovered/Not Resolved]
